FAERS Safety Report 8173971-8 (Version None)
Quarter: 2012Q1

REPORT INFORMATION
  Report Type: 
  Country: None (occurrence: None)
  Receive Date: 20120229
  Receipt Date: 20120227
  Transmission Date: 20120608
  Serious: Yes (Other)
  Sender: FDA-Public Use
  Company Number: IT-ROCHE-1043735

PATIENT
  Sex: Female

DRUGS (1)
  1. RITUXIMAB [Suspect]
     Indication: B-CELL LYMPHOMA
     Route: 042
     Dates: start: 20110923, end: 20111122

REACTIONS (1)
  - HEPATOTOXICITY [None]
